FAERS Safety Report 19095902 (Version 1)
Quarter: 2021Q2

REPORT INFORMATION
  Report Type: Spontaneous
  Country: US (occurrence: US)
  Receive Date: 20210406
  Receipt Date: 20210406
  Transmission Date: 20210717
  Serious: No
  Sender: FDA-Public Use
  Company Number: US-ORGANON-O2103USA002342

PATIENT
  Age: 82 Year
  Sex: Male

DRUGS (3)
  1. MONTELUKAST [Suspect]
     Active Substance: MONTELUKAST SODIUM
     Dosage: UNK
  2. SINGULAIR [Suspect]
     Active Substance: MONTELUKAST SODIUM
     Indication: ASTHMA
     Dosage: 10MG ONCE DAILY
     Route: 048
  3. ELIQUIS [Concomitant]
     Active Substance: APIXABAN
     Dosage: UNK

REACTIONS (2)
  - Drug ineffective [Not Recovered/Not Resolved]
  - Asthma [Not Recovered/Not Resolved]

NARRATIVE: CASE EVENT DATE: 20210311
